FAERS Safety Report 10872193 (Version 2)
Quarter: 2015Q1

REPORT INFORMATION
  Report Type: Spontaneous
  Country: US (occurrence: US)
  Receive Date: 20150226
  Receipt Date: 20150304
  Transmission Date: 20150721
  Serious: Yes (Hospitalization)
  Sender: FDA-Public Use
  Company Number: US-BIOMARINAP-US-2015-105631

PATIENT
  Age: 22 Year
  Sex: Male
  Weight: 26 kg

DRUGS (1)
  1. NAGLAZYME [Suspect]
     Active Substance: GALSULFASE
     Indication: MUCOPOLYSACCHARIDOSIS VI
     Dosage: 25 ML, QW
     Route: 042
     Dates: start: 20061109

REACTIONS (4)
  - Pneumothorax [None]
  - CSF shunt removal [Not Recovered/Not Resolved]
  - Post procedural complication [None]
  - Movement disorder [None]

NARRATIVE: CASE EVENT DATE: 201502
